FAERS Safety Report 21221158 (Version 1)
Quarter: 2022Q3

REPORT INFORMATION
  Report Type: Spontaneous
  Country: FR (occurrence: FR)
  Receive Date: 20220817
  Receipt Date: 20220817
  Transmission Date: 20221027
  Serious: Yes (Hospitalization)
  Sender: FDA-Public Use
  Company Number: FR-AFSSAPS-ST20221854

PATIENT
  Age: 48 Year
  Sex: Female

DRUGS (8)
  1. CLOPIDOGREL [Suspect]
     Active Substance: CLOPIDOGREL BISULFATE
     Indication: Systemic lupus erythematosus
     Dosage: 1 DOSAGE FORM
     Route: 048
     Dates: start: 20211105, end: 20211107
  2. PREDNISOLONE [Suspect]
     Active Substance: PREDNISOLONE
     Indication: Product used for unknown indication
     Dosage: 1 DOSAGE FORM
     Route: 048
     Dates: start: 20211105, end: 20211107
  3. PREDNISONE [Suspect]
     Active Substance: PREDNISONE
     Indication: Systemic lupus erythematosus
     Dosage: 15 MILLIGRAM (15MG PER DAY)
     Route: 048
     Dates: start: 20211105, end: 20211107
  4. DEXAMETHASONE [Suspect]
     Active Substance: DEXAMETHASONE
     Indication: Systemic lupus erythematosus
     Dosage: 1 DOSAGE FORM
     Route: 048
     Dates: start: 20211105, end: 20211107
  5. KARDEGIC [Suspect]
     Active Substance: ASPIRIN DL-LYSINE
     Indication: Systemic lupus erythematosus
     Dosage: 75 MILLIGRAM  (75 MG AND MIDI)
     Route: 048
     Dates: start: 20211105, end: 20211107
  6. METHOTREXATE [Suspect]
     Active Substance: METHOTREXATE
     Indication: Systemic lupus erythematosus
     Dosage: 15 MILLIGRAM (15 MG SC 1 PER WEEK)
     Route: 048
     Dates: start: 20211105, end: 20211107
  7. CHLOROQUINE [Suspect]
     Active Substance: CHLOROQUINE
     Indication: Systemic lupus erythematosus
     Dosage: 1 DOSAGE FORM
     Route: 048
     Dates: start: 20211105, end: 20211107
  8. PLAQUENIL [Suspect]
     Active Substance: HYDROXYCHLOROQUINE SULFATE
     Indication: Systemic lupus erythematosus
     Dosage: 800 MILLIGRAM (200 MG X 2 MORNING AND EVENING)
     Route: 048
     Dates: start: 20211105, end: 20211107

REACTIONS (1)
  - Rash maculo-papular [Recovered/Resolved]

NARRATIVE: CASE EVENT DATE: 20211106
